FAERS Safety Report 22058687 (Version 1)
Quarter: 2023Q1

REPORT INFORMATION
  Report Type: Spontaneous
  Country: FR (occurrence: None)
  Receive Date: 20230303
  Receipt Date: 20230303
  Transmission Date: 20230418
  Serious: Yes (Other)
  Sender: FDA-Public Use
  Company Number: 2023A051180

PATIENT
  Age: 66 Year
  Sex: Female

DRUGS (13)
  1. OMEPRAZOLE [Suspect]
     Active Substance: OMEPRAZOLE
  2. RAMIPRIL [Suspect]
     Active Substance: RAMIPRIL
     Indication: Hypertension
     Route: 048
  3. BROMAZEPAM [Suspect]
     Active Substance: BROMAZEPAM
     Indication: Anxiety
     Dosage: 0.50 DOSAGE FORM 1/2 STICK IN CASE OF ANXIETY ATTACKS, TO BE REPEATED IF
     Route: 048
  4. PREGABALIN [Suspect]
     Active Substance: PREGABALIN
     Indication: Pain
     Route: 048
  5. ESCITALOPRAM [Suspect]
     Active Substance: ESCITALOPRAM OXALATE
     Indication: Product used for unknown indication
  6. ZOPICLONE [Suspect]
     Active Substance: ZOPICLONE
     Indication: Insomnia
     Route: 048
  7. HYDROXYZINE HYDROCHLORIDE [Suspect]
     Active Substance: HYDROXYZINE HYDROCHLORIDE
     Indication: Anxiety
     Route: 048
  8. DAFALGAN CODEINE [Suspect]
     Active Substance: ACETAMINOPHEN\CODEINE PHOSPHATE
     Indication: Pain
     Dosage: 2CP IF PAIN 3 TIMES A DAY (DO NOT EXCEED 3G/DAY
     Route: 048
  9. METFORMIN [Suspect]
     Active Substance: METFORMIN HYDROCHLORIDE
     Dosage: 1/DR
  10. INNOVAIR [Suspect]
     Active Substance: BECLOMETHASONE DIPROPIONATE\FORMOTEROL
     Dosage: 1 PUFF, DAILY
  11. FLECTOR [Suspect]
     Active Substance: DICLOFENAC EPOLAMINE
     Dosage: GEL OR BOTTLE, 4 APPLICATIONS PER DAY
  12. VOLTARENE (DICLOFENAC SODIUM) [Suspect]
     Active Substance: DICLOFENAC SODIUM
  13. ALBUTEROL [Suspect]
     Active Substance: ALBUTEROL

REACTIONS (8)
  - Fall [Recovered/Resolved]
  - Arthralgia [Unknown]
  - Headache [Unknown]
  - Back pain [Unknown]
  - Constipation [Unknown]
  - Vomiting [Unknown]
  - Dysuria [Unknown]
  - Pollakiuria [Unknown]
